FAERS Safety Report 10025880 (Version 3)
Quarter: 2014Q2

REPORT INFORMATION
  Report Type: Spontaneous
  Country: CA (occurrence: CA)
  Receive Date: 20140320
  Receipt Date: 20140528
  Transmission Date: 20141212
  Serious: Yes (Other)
  Sender: FDA-Public Use
  Company Number: CA-ACTAVIS-2014-05230

PATIENT
  Age: 30 Year
  Sex: Female
  Weight: 66 kg

DRUGS (1)
  1. NEXT CHOICE [Suspect]
     Indication: POST COITAL CONTRACEPTION
     Dosage: 2 X 0.75 MG
     Dates: start: 20140117

REACTIONS (11)
  - Lip swelling [Recovered/Resolved]
  - Generalised oedema [Recovered/Resolved]
  - Swelling face [Recovered/Resolved]
  - Rash generalised [Recovered/Resolved]
  - Generalised erythema [Recovered/Resolved]
  - Hypersensitivity [Recovered/Resolved]
  - Eye swelling [Recovered/Resolved]
  - Pruritus generalised [Recovered/Resolved]
  - Dermatitis allergic [Recovered/Resolved]
  - Impaired work ability [Recovered/Resolved]
  - Eyelid oedema [Recovered/Resolved]
